FAERS Safety Report 10648482 (Version 3)
Quarter: 2015Q1

REPORT INFORMATION
  Report Type: Other
  Country: IE (occurrence: IE)
  Receive Date: 20141212
  Receipt Date: 20150331
  Transmission Date: 20150720
  Serious: Yes (Other)
  Sender: FDA-Public Use
  Company Number: IE-TARO PHARMACEUTICALS U.S.A., INC-2014SUN02850

PATIENT
  Age: 73 Year
  Sex: Male

DRUGS (12)
  1. LOSARTAN TEVA [Concomitant]
     Active Substance: LOSARTAN
     Indication: HYPERTENSION
     Dosage: 100 MG, QD
     Dates: start: 20121203, end: 20141119
  2. PRAVASTATIN [Concomitant]
     Active Substance: PRAVASTATIN\PRAVASTATIN SODIUM
     Indication: HYPERCHOLESTEROLAEMIA
     Dosage: 40 MG, AT NIGHT
     Dates: start: 20121203, end: 20141119
  3. WARFARIN TEVA 1 MG TABLETS [Suspect]
     Active Substance: WARFARIN
     Dosage: 5 MG, 3 DAYS PER WEEK
     Route: 065
  4. WARFARIN TEVA 1 MG TABLETS [Suspect]
     Active Substance: WARFARIN
     Dosage: 6 MG, 3 DAYS PER WEEK
     Route: 065
     Dates: end: 20150120
  5. AMLODIPINE [Concomitant]
     Active Substance: AMLODIPINE BESYLATE
     Indication: HYPERTENSION
     Dosage: 5 MG, QD
     Dates: start: 20121203, end: 20141119
  6. WARFARIN TEVA 1 MG TABLETS [Suspect]
     Active Substance: WARFARIN
     Indication: ANTICOAGULANT THERAPY
     Dosage: 5 MG, 4 DAYS PER WEEK
     Route: 065
     Dates: start: 20140529, end: 20141119
  7. BISOP [Concomitant]
     Indication: HYPERTENSION
     Dosage: 5 MG, QD
     Dates: start: 20121203, end: 20141119
  8. EXPUTEX 250MG/5ML ORAL SOLUTION [Suspect]
     Active Substance: CARBOCYSTEINE
     Indication: PRODUCTIVE COUGH
     Dosage: 10 ML, TID
     Route: 048
     Dates: start: 20141110, end: 20141117
  9. WARFARIN TEVA 1 MG TABLETS [Suspect]
     Active Substance: WARFARIN
     Dosage: 6 MG, 3 DAYS PER WEEK
     Route: 065
     Dates: start: 20140529, end: 20141119
  10. METOPHAGE [Concomitant]
     Indication: TYPE 2 DIABETES MELLITUS
     Dosage: 1500 MG, DAILY IN DIVIDED DOSES (500 MG)
     Dates: start: 20121203, end: 20141119
  11. ALLOPURINOL TEVA [Concomitant]
     Active Substance: ALLOPURINOL
     Indication: GOUT
     Dosage: 100 MG, QD
     Dates: start: 20121203, end: 20141119
  12. PANTOPRAZOLE TEVA PHARMA [Concomitant]
     Indication: DYSPEPSIA
     Dosage: 40 MG, QD
     Dates: start: 20140511, end: 20141119

REACTIONS (4)
  - Haemoglobin decreased [Recovered/Resolved]
  - International normalised ratio increased [Recovered/Resolved]
  - Drug interaction [Recovered/Resolved]
  - Tumour haemorrhage [Recovered/Resolved]

NARRATIVE: CASE EVENT DATE: 20141117
